FAERS Safety Report 9463860 (Version 3)
Quarter: 2014Q2

REPORT INFORMATION
  Report Type: Spontaneous
  Country: FR (occurrence: FR)
  Receive Date: 20130819
  Receipt Date: 20140416
  Transmission Date: 20141212
  Serious: Yes (Hospitalization)
  Sender: FDA-Public Use
  Company Number: FR-PFIZER INC-2013236460

PATIENT
  Age: 70 Year
  Sex: Male
  Weight: 61 kg

DRUGS (2)
  1. CRIZOTINIB [Suspect]
     Indication: METASTATIC BRONCHIAL CARCINOMA
     Dosage: 250 MG, 2X/DAY
     Dates: start: 20121026, end: 20130327
  2. HEPT-A-MYL [Concomitant]

REACTIONS (4)
  - Abnormal behaviour [Recovering/Resolving]
  - Cognitive disorder [Recovering/Resolving]
  - Bronchitis [Unknown]
  - Bronchospasm [Unknown]
